FAERS Safety Report 7134097-5 (Version None)
Quarter: 2010Q4

REPORT INFORMATION
  Report Type: 
  Country: None (occurrence: None)
  Receive Date: 20101203
  Receipt Date: 20101124
  Transmission Date: 20110411
  Serious: Yes (Other)
  Sender: FDA-Public Use
  Company Number: CA-JNJFOC-20101105579

PATIENT
  Age: 79 Year
  Sex: Female

DRUGS (4)
  1. RISPERDAL CONSTA [Suspect]
     Indication: SCHIZOAFFECTIVE DISORDER
     Route: 030
  2. KEMADRIN [Concomitant]
     Indication: SCHIZOAFFECTIVE DISORDER
     Route: 065
  3. KEMADRIN [Concomitant]
     Indication: EXTRAPYRAMIDAL DISORDER
     Route: 065
  4. ATIVAN [Concomitant]
     Route: 065

REACTIONS (5)
  - ARRHYTHMIA [None]
  - BRADYCARDIA [None]
  - CARDIAC DISORDER [None]
  - LIMB DISCOMFORT [None]
  - SUPRAVENTRICULAR EXTRASYSTOLES [None]
